FAERS Safety Report 18240431 (Version 2)
Quarter: 2020Q3

REPORT INFORMATION
  Report Type: Spontaneous
  Country: FR (occurrence: FR)
  Receive Date: 20200908
  Receipt Date: 20200922
  Transmission Date: 20201103
  Serious: Yes (Death, Other)
  Sender: FDA-Public Use
  Company Number: FR-AUROBINDO-AUR-APL-2020-047118

PATIENT
  Age: 71 Year
  Sex: Male

DRUGS (9)
  1. ZOLPIDEM [Suspect]
     Active Substance: ZOLPIDEM TARTRATE
     Dosage: UNK (#1)
     Route: 065
  2. LORAZEPAM. [Suspect]
     Active Substance: LORAZEPAM
     Indication: PRODUCT USED FOR UNKNOWN INDICATION
     Dosage: UNK
     Route: 065
  3. ZOLPIDEM [Suspect]
     Active Substance: ZOLPIDEM TARTRATE
     Indication: PRODUCT USED FOR UNKNOWN INDICATION
     Dosage: UNK (UNKNOWN FREQ)
     Route: 065
  4. MONTELUKAST [Suspect]
     Active Substance: MONTELUKAST SODIUM
     Indication: PRODUCT USED FOR UNKNOWN INDICATION
     Dosage: UNK
     Route: 065
  5. TAMSULOSIN [Suspect]
     Active Substance: TAMSULOSIN
     Dosage: UNK
     Route: 065
  6. RUPATADINE ARROW TABLET [Suspect]
     Active Substance: RUPATADINE FUMARATE
     Indication: RHINITIS ALLERGIC
     Dosage: 10 MILLIGRAM, ONCE A DAY
     Route: 065
     Dates: start: 20200525, end: 20200528
  7. RUPATADINE ARROW TABLET [Suspect]
     Active Substance: RUPATADINE FUMARATE
  8. MONTELUKAST [Suspect]
     Active Substance: MONTELUKAST SODIUM
     Dosage: UNK
     Route: 065
  9. TAMSULOSIN [Suspect]
     Active Substance: TAMSULOSIN
     Indication: PRODUCT USED FOR UNKNOWN INDICATION
     Dosage: UNK (#1)
     Route: 065

REACTIONS (2)
  - Death [Fatal]
  - Drug interaction [Unknown]

NARRATIVE: CASE EVENT DATE: 20200528
